FAERS Safety Report 23601151 (Version 1)
Quarter: 2024Q1

REPORT INFORMATION
  Report Type: Spontaneous
  Country: US (occurrence: None)
  Receive Date: 20240305
  Receipt Date: 20240305
  Transmission Date: 20240410
  Serious: Yes (Hospitalization)
  Sender: FDA-Public Use
  Company Number: None

PATIENT
  Age: 69 Year
  Sex: Female

DRUGS (2)
  1. OPSUMIT [Suspect]
     Active Substance: MACITENTAN
     Indication: Pulmonary arterial hypertension
     Dosage: 10MG ONCE DAILY ORAL?
     Route: 048
     Dates: start: 202307
  2. ORENITRAM ER [Concomitant]

REACTIONS (4)
  - Dyspnoea [None]
  - Asthenia [None]
  - Chest pain [None]
  - Therapy change [None]

NARRATIVE: CASE EVENT DATE: 20240304
